FAERS Safety Report 9321711 (Version 1)
Quarter: 2013Q2

REPORT INFORMATION
  Report Type: Spontaneous
  Country: DE (occurrence: DE)
  Receive Date: 20130531
  Receipt Date: 20130531
  Transmission Date: 20140414
  Serious: Yes (Other)
  Sender: FDA-Public Use
  Company Number: DE-CUBIST PHARMACEUTICALS, INC.-2013CBST000422

PATIENT
  Sex: 0

DRUGS (3)
  1. CUBICIN [Suspect]
     Indication: STAPHYLOCOCCAL INFECTION
     Dosage: 850 MG, UNK
     Route: 065
     Dates: start: 20130516, end: 20130521
  2. GENTAMICIN [Concomitant]
     Indication: STAPHYLOCOCCAL SEPSIS
     Dosage: UNK UNK, UNK
     Route: 065
  3. RIFAMPICIN [Concomitant]
     Indication: STAPHYLOCOCCAL SEPSIS
     Dosage: UNK UNK, UNK
     Route: 065

REACTIONS (3)
  - Rash [Recovered/Resolved]
  - Pulmonary oedema [Unknown]
  - Blood pressure decreased [Unknown]
